FAERS Safety Report 5981654-5 (Version None)
Quarter: 2008Q4

REPORT INFORMATION
  Report Type: 
  Country: None (occurrence: None)
  Receive Date: 20081202
  Receipt Date: 20081118
  Transmission Date: 20090506
  Serious: Yes (Hospitalization)
  Sender: FDA-Public Use
  Company Number: KV200800297

PATIENT
  Age: 76 Year
  Sex: Female
  Weight: 77.1 kg

DRUGS (6)
  1. PROPAFENONE HCL [Suspect]
     Indication: ARRHYTHMIA SUPRAVENTRICULAR
     Dosage: 150 MG, ONE TAB, TID
     Dates: start: 19980101, end: 20081101
  2. METOPROLOL TARTRATE [Concomitant]
  3. LISINOPRIL [Concomitant]
  4. CALCIUM (CALCIUM) [Concomitant]
  5. ASPIRIN [Concomitant]
  6. EVISTA /01303201/ (RALOXIFENE) [Concomitant]

REACTIONS (4)
  - CARDIAC FLUTTER [None]
  - HEART RATE INCREASED [None]
  - HEART RATE IRREGULAR [None]
  - PRODUCT QUALITY ISSUE [None]
